FAERS Safety Report 7950036-9 (Version None)
Quarter: 2011Q4

REPORT INFORMATION
  Report Type: 
  Country: None (occurrence: None)
  Receive Date: 20111130
  Receipt Date: 20111126
  Transmission Date: 20120403
  Serious: Yes (Other)
  Sender: FDA-Public Use
  Company Number: US-PFIZER INC-2011288584

PATIENT
  Sex: Female
  Weight: 45.351 kg

DRUGS (10)
  1. KINERET [Concomitant]
     Indication: JUVENILE ARTHRITIS
     Dosage: 67 MG, UNK
  2. CARAFATE [Concomitant]
     Indication: SUPERIOR MESENTERIC ARTERY SYNDROME
     Dosage: UNK
  3. NEXIUM [Concomitant]
     Indication: SUPERIOR MESENTERIC ARTERY SYNDROME
     Dosage: UNK
  4. OXYCONTIN [Concomitant]
     Indication: PAIN
     Dosage: UNK
  5. CHANTIX [Suspect]
     Indication: SMOKING CESSATION THERAPY
     Dosage: 0.5 MG, 1X/DAY
     Route: 048
     Dates: start: 20111125
  6. ADVAIR DISKUS 100/50 [Concomitant]
     Indication: CHRONIC OBSTRUCTIVE PULMONARY DISEASE
     Dosage: UNK
  7. SPIRIVA [Concomitant]
     Indication: CHRONIC OBSTRUCTIVE PULMONARY DISEASE
     Dosage: UNK
  8. ZOFRAN [Concomitant]
     Indication: NAUSEA
     Dosage: 8 MG, UNK
  9. ZOFRAN [Concomitant]
     Indication: VOMITING
  10. FOLIC ACID [Concomitant]
     Indication: BLOOD FOLATE DECREASED
     Dosage: UNK

REACTIONS (8)
  - CRYING [None]
  - DEPRESSED MOOD [None]
  - VOMITING [None]
  - FEELING ABNORMAL [None]
  - TREMOR [None]
  - MIGRAINE [None]
  - NAUSEA [None]
  - ABDOMINAL PAIN UPPER [None]
